FAERS Safety Report 9376790 (Version 1)
Quarter: 2013Q3

REPORT INFORMATION
  Report Type: Spontaneous
  Country: US (occurrence: US)
  Receive Date: 20130701
  Receipt Date: 20130701
  Transmission Date: 20140515
  Serious: Yes (Hospitalization, Other)
  Sender: FDA-Public Use
  Company Number: US-JNJFOC-20130612163

PATIENT
  Sex: Female

DRUGS (5)
  1. REMICADE [Suspect]
     Indication: CROHN^S DISEASE
     Route: 042
     Dates: start: 201206
  2. REMICADE [Suspect]
     Indication: CROHN^S DISEASE
     Dosage: RESTARTED 4 OR 5 YEARS PRIOR TO THE DATE OF REPORT
     Route: 042
  3. REMICADE [Suspect]
     Indication: CROHN^S DISEASE
     Dosage: SINCE 7 OR 8 YEARS PRIOR TO THE DATE OF REPORT
     Route: 042
  4. BENADRYL [Concomitant]
     Indication: PREMEDICATION
     Route: 065
     Dates: start: 201206
  5. BENADRYL [Concomitant]
     Indication: PREMEDICATION
     Route: 065

REACTIONS (7)
  - Hepatic encephalopathy [Not Recovered/Not Resolved]
  - Hepatic cirrhosis [Not Recovered/Not Resolved]
  - Cholelithiasis [Recovered/Resolved]
  - Crohn^s disease [Recovered/Resolved]
  - Hypersensitivity [Recovered/Resolved]
  - Memory impairment [Not Recovered/Not Resolved]
  - Infusion related reaction [Recovered/Resolved]
